FAERS Safety Report 9511475 (Version 1)
Quarter: 2013Q3

REPORT INFORMATION
  Report Type: Spontaneous
  Country: US (occurrence: None)
  Receive Date: 20130909
  Receipt Date: 20130909
  Transmission Date: 20140515
  Serious: Yes (Other)
  Sender: FDA-Public Use
  Company Number: None

PATIENT
  Age: 74 Year
  Sex: Female
  Weight: 68.04 kg

DRUGS (1)
  1. TECHNETIUM TC-99M SESTAMIBI [Suspect]

REACTIONS (5)
  - Local swelling [None]
  - Muscle spasms [None]
  - Muscle spasms [None]
  - Insomnia [None]
  - Asthenia [None]
